FAERS Safety Report 9817508 (Version 1)
Quarter: 2014Q1

REPORT INFORMATION
  Report Type: Report from Study
  Country: US (occurrence: US)
  Receive Date: 20140115
  Receipt Date: 20140115
  Transmission Date: 20141002
  Serious: Yes (Death)
  Sender: FDA-Public Use
  Company Number: US-ROCHE-1318428

PATIENT
  Age: 60 Year
  Sex: Male

DRUGS (4)
  1. AVASTIN [Suspect]
     Indication: METASTASES TO NERVOUS SYSTEM
     Dosage: 21/MAR/2011, 14/APR/2011, 06/MAY/2011, 27/MAY/2011
     Route: 042
     Dates: start: 201103
  2. AVASTIN [Suspect]
     Indication: LUNG NEOPLASM MALIGNANT
  3. CARBOPLATIN [Concomitant]
     Indication: LUNG NEOPLASM MALIGNANT
     Route: 042
  4. TAXOL [Concomitant]
     Indication: LUNG NEOPLASM MALIGNANT

REACTIONS (2)
  - Metastases to central nervous system [Unknown]
  - Metastatic squamous cell carcinoma [Fatal]
